FAERS Safety Report 4838916-4 (Version None)
Quarter: 2005Q4

REPORT INFORMATION
  Report Type: 
  Country: None (occurrence: None)
  Receive Date: 20051129
  Receipt Date: 20050901
  Transmission Date: 20060501
  Serious: Yes (Hospitalization, Disabling, Other)
  Sender: FDA-Public Use
  Company Number: US-GLAXOSMITHKLINE-A0572886A

PATIENT
  Age: 50 Year
  Sex: Male
  Weight: 80.9 kg

DRUGS (9)
  1. EPZICOM [Suspect]
     Indication: HIV INFECTION
     Dosage: 1TAB PER DAY
     Route: 048
     Dates: start: 20050728, end: 20050829
  2. ATAZANAVIR [Concomitant]
     Indication: HIV INFECTION
     Dosage: 300MG PER DAY
     Route: 048
     Dates: start: 20050728, end: 20050829
  3. RITONAVIR [Concomitant]
     Indication: HIV INFECTION
     Dosage: 100MG PER DAY
     Route: 048
     Dates: start: 20050728, end: 20050829
  4. BUMEX [Concomitant]
     Dosage: 4MG TWICE PER DAY
  5. ZAROXOLYN [Concomitant]
     Dosage: 5MG PER DAY
  6. PERSANTINE [Concomitant]
     Dosage: 75MG PER DAY
  7. ASPIRIN [Concomitant]
  8. EPO [Concomitant]
  9. TOPROL-XL [Concomitant]
     Indication: HYPERTENSION

REACTIONS (1)
  - BLOOD CREATININE INCREASED [None]
